FAERS Safety Report 4387010-8 (Version None)
Quarter: 2004Q2

REPORT INFORMATION
  Report Type: 
  Country: None (occurrence: None)
  Receive Date: 20040625
  Receipt Date: 20040616
  Transmission Date: 20050107
  Serious: Yes (Other)
  Sender: FDA-Public Use
  Company Number: 2004-05-0520

PATIENT
  Age: 30 Year
  Sex: Female

DRUGS (1)
  1. INTRON A [Suspect]
     Indication: HEPATITIS B
     Dates: start: 19940101, end: 19970101

REACTIONS (9)
  - ALPHA 1 FOETOPROTEIN INCREASED [None]
  - AMENORRHOEA [None]
  - AUTOIMMUNE DISORDER [None]
  - HAEMANGIOMA OF LIVER [None]
  - HEPATIC CIRRHOSIS [None]
  - HYPERPROLACTINAEMIA [None]
  - HYPOPITUITARISM [None]
  - PITUITARY CYST [None]
  - SECONDARY HYPOGONADISM [None]
